FAERS Safety Report 8290326-6 (Version None)
Quarter: 2012Q2

REPORT INFORMATION
  Report Type: 
  Country: None (occurrence: None)
  Receive Date: 20120412
  Receipt Date: 20120412
  Transmission Date: 20120825
  Serious: No
  Sender: FDA-Public Use
  Company Number: None

PATIENT
  Age: 52 Year
  Sex: Male
  Weight: 107 kg

DRUGS (1)
  1. ROCURONIUM BROMIDE [Suspect]
     Indication: PARALYSIS
     Dosage: 140MG IV
     Route: 042
     Dates: start: 20110409

REACTIONS (1)
  - POOR QUALITY DRUG ADMINISTERED [None]
